FAERS Safety Report 23023803 (Version 1)
Quarter: 2023Q4

REPORT INFORMATION
  Report Type: Other
  Country: US (occurrence: US)
  Receive Date: 20231003
  Receipt Date: 20231003
  Transmission Date: 20240110
  Serious: Yes (Death, Other)
  Sender: FDA-Public Use
  Company Number: US-MAYNE PHARMA-2023MYN000593

PATIENT

DRUGS (1)
  1. IMVEXXY [Suspect]
     Active Substance: ESTRADIOL
     Indication: Product used for unknown indication
     Dosage: 4 MCG (ONE CAPSULE TWICE A WEEK, MAINTENANCE PACK)
     Route: 067

REACTIONS (1)
  - Death [Fatal]
